FAERS Safety Report 18928942 (Version 5)
Quarter: 2021Q3

REPORT INFORMATION
  Report Type: Spontaneous
  Country: US (occurrence: US)
  Receive Date: 20210223
  Receipt Date: 20210929
  Transmission Date: 20211014
  Serious: Yes (Other)
  Sender: FDA-Public Use
  Company Number: US-PFIZER INC-2021178328

PATIENT
  Age: 68 Year
  Sex: Female

DRUGS (5)
  1. IBRANCE [Suspect]
     Active Substance: PALBOCICLIB
     Dosage: 125 MG, CYCLIC (14 DAYS ON AND 7 DAYS)
     Dates: start: 20210125
  2. IBRANCE [Suspect]
     Active Substance: PALBOCICLIB
     Dosage: 125 MG, CYCLIC (14 DAYS ON AND 7 DAYS OFF)
     Dates: start: 20210126
  3. IBRANCE [Suspect]
     Active Substance: PALBOCICLIB
     Dosage: 125MG
     Dates: start: 20210110
  4. IBRANCE [Suspect]
     Active Substance: PALBOCICLIB
     Dosage: 125 MG
     Dates: start: 20210322, end: 20210816
  5. IBRANCE [Suspect]
     Active Substance: PALBOCICLIB
     Dosage: 125 MG
     Dates: start: 20210113

REACTIONS (6)
  - Neutropenia [Unknown]
  - Epistaxis [Unknown]
  - Fatigue [Unknown]
  - White blood cell count decreased [Not Recovered/Not Resolved]
  - Malaise [Unknown]
  - Fungal infection [Unknown]

NARRATIVE: CASE EVENT DATE: 2021
